FAERS Safety Report 18532317 (Version 1)
Quarter: 2020Q4

REPORT INFORMATION
  Report Type: Spontaneous
  Country: US (occurrence: US)
  Receive Date: 20201123
  Receipt Date: 20201123
  Transmission Date: 20210114
  Serious: Yes (Life-Threatening, Hospitalization, Other)
  Sender: FDA-Public Use
  Company Number: US-AUROBINDO-AUR-APL-2020-056958

PATIENT
  Age: 73 Year
  Sex: Male

DRUGS (2)
  1. AMIODARONE HYDROCHLORIDE. [Suspect]
     Active Substance: AMIODARONE HYDROCHLORIDE
     Dosage: UNK
     Route: 048
  2. AMIODARONE HYDROCHLORIDE. [Suspect]
     Active Substance: AMIODARONE HYDROCHLORIDE
     Indication: ATRIAL FIBRILLATION
     Dosage: UNK
     Route: 042

REACTIONS (8)
  - Condition aggravated [Recovering/Resolving]
  - Fibrosis [Recovering/Resolving]
  - Acute kidney injury [Recovering/Resolving]
  - Multiple organ dysfunction syndrome [Recovering/Resolving]
  - Toxicity to various agents [Recovering/Resolving]
  - Systemic inflammatory response syndrome [Recovering/Resolving]
  - Organising pneumonia [Recovering/Resolving]
  - Thrombocytopenia [Recovering/Resolving]
